FAERS Safety Report 6675083-9 (Version None)
Quarter: 2010Q2

REPORT INFORMATION
  Report Type: 
  Country: None (occurrence: None)
  Receive Date: 20100409
  Receipt Date: 20100407
  Transmission Date: 20101027
  Serious: Yes (Other)
  Sender: FDA-Public Use
  Company Number: A0853901A

PATIENT
  Age: 30 Year
  Sex: Female

DRUGS (1)
  1. ALLI [Suspect]
     Indication: WEIGHT LOSS DIET
     Dates: start: 20100301

REACTIONS (5)
  - FEELING ABNORMAL [None]
  - LABORATORY TEST ABNORMAL [None]
  - MALAISE [None]
  - PANCREATITIS [None]
  - PYREXIA [None]
